FAERS Safety Report 24065328 (Version 1)
Quarter: 2024Q3

REPORT INFORMATION
  Report Type: Spontaneous
  Country: US (occurrence: US)
  Receive Date: 20240709
  Receipt Date: 20240709
  Transmission Date: 20241017
  Serious: No
  Sender: JOHNSON AND JOHNSON
  Company Number: US-JNJFOC-20240707359

PATIENT
  Sex: Female

DRUGS (1)
  1. SPRAVATO [Suspect]
     Active Substance: ESKETAMINE
     Indication: Product used for unknown indication

REACTIONS (11)
  - Motion sickness [Unknown]
  - Nonspecific reaction [Recovered/Resolved]
  - Tooth extraction [Unknown]
  - Tooth fracture [Unknown]
  - Panic attack [Unknown]
  - Gait disturbance [Unknown]
  - Visual impairment [Unknown]
  - Blood pressure increased [Unknown]
  - Feeling abnormal [Unknown]
  - Vomiting [Unknown]
  - Cold sweat [Unknown]

NARRATIVE: CASE EVENT DATE: 20240702
